FAERS Safety Report 9796315 (Version 2)
Quarter: 2014Q1

REPORT INFORMATION
  Report Type: Report from Study
  Country: ZA (occurrence: ZA)
  Receive Date: 20140103
  Receipt Date: 20140108
  Transmission Date: 20141002
  Serious: Yes (Death, Other)
  Sender: FDA-Public Use
  Company Number: PHHY2014ZA000506

PATIENT
  Age: 52 Year
  Sex: Male

DRUGS (1)
  1. GLIVEC [Suspect]
     Indication: GASTROINTESTINAL STROMAL TUMOUR
     Dosage: 800 MG
     Route: 048

REACTIONS (4)
  - Death [Fatal]
  - Terminal state [Unknown]
  - Gastrointestinal stromal tumour [Unknown]
  - Malignant neoplasm progression [Unknown]
